FAERS Safety Report 25734120 (Version 1)
Quarter: 2025Q3

REPORT INFORMATION
  Report Type: Spontaneous
  Country: EG (occurrence: EG)
  Receive Date: 20250828
  Receipt Date: 20250828
  Transmission Date: 20251020
  Serious: Yes (Other)
  Sender: Kenvue
  Company Number: EG-GSK-EG2025EME092193

PATIENT

DRUGS (1)
  1. CETIRIZINE HYDROCHLORIDE [Suspect]
     Active Substance: CETIRIZINE HYDROCHLORIDE
     Indication: Weight increased
     Route: 065
     Dates: start: 2005

REACTIONS (2)
  - Choking [Unknown]
  - Weight increased [Unknown]
